FAERS Safety Report 4956228-5 (Version None)
Quarter: 2006Q1

REPORT INFORMATION
  Report Type: 
  Country: None (occurrence: None)
  Receive Date: 20060323
  Receipt Date: 20060316
  Transmission Date: 20060701
  Serious: Yes (Life-Threatening)
  Sender: FDA-Public Use
  Company Number: MK200602-0155-2

PATIENT
  Age: 72 Year
  Sex: Male

DRUGS (3)
  1. OPTIRAY 320 [Suspect]
     Indication: COMPUTERISED TOMOGRAM
     Dosage: 100 ML, ONCE
     Dates: start: 20060213, end: 20060213
  2. MIXED AMINO ACID-CAR [Concomitant]
  3. MEROPENEM TRIHYDRATE [Concomitant]

REACTIONS (3)
  - ANAPHYLACTIC SHOCK [None]
  - CARDIO-RESPIRATORY ARREST [None]
  - DEPRESSED LEVEL OF CONSCIOUSNESS [None]
